FAERS Safety Report 8121307-0 (Version None)
Quarter: 2012Q1

REPORT INFORMATION
  Report Type: 
  Country: None (occurrence: None)
  Receive Date: 20120208
  Receipt Date: 20120203
  Transmission Date: 20120608
  Serious: Yes (Other)
  Sender: FDA-Public Use
  Company Number: US-BAYER-2012-011829

PATIENT

DRUGS (1)
  1. ALEVE (CAPLET) [Suspect]
     Indication: MIGRAINE
     Dosage: 2 DF, UNK
     Route: 048

REACTIONS (3)
  - FEELING ABNORMAL [None]
  - ANXIETY [None]
  - MIGRAINE [None]
